FAERS Safety Report 6258831-1 (Version None)
Quarter: 2009Q3

REPORT INFORMATION
  Report Type: 
  Country: None (occurrence: None)
  Receive Date: 20090707
  Receipt Date: 20090604
  Transmission Date: 20100115
  Serious: Yes (Hospitalization)
  Sender: FDA-Public Use
  Company Number: NL-CELGENEUS-114-21880-08070014

PATIENT
  Sex: Male
  Weight: 53 kg

DRUGS (6)
  1. REVLIMID [Suspect]
     Indication: MULTIPLE MYELOMA
     Route: 048
     Dates: start: 20080415, end: 20080429
  2. REVLIMID [Suspect]
     Route: 048
     Dates: start: 20080708
  3. BROXIL [Concomitant]
     Indication: PROPHYLAXIS
     Route: 048
     Dates: start: 20080317, end: 20080428
  4. OSTAC [Concomitant]
     Indication: MULTIPLE MYELOMA
     Route: 048
     Dates: start: 20080319, end: 20080428
  5. CELLCEPT [Concomitant]
     Indication: STEM CELL TRANSPLANT
     Route: 048
     Dates: start: 20080318, end: 20080428
  6. CYCLOSPORINE [Concomitant]
     Indication: PROPHYLAXIS
     Route: 048
     Dates: start: 20080318, end: 20080428

REACTIONS (3)
  - EXFOLIATIVE RASH [None]
  - GRAFT VERSUS HOST DISEASE [None]
  - PYREXIA [None]
